FAERS Safety Report 13312599 (Version 1)
Quarter: 2017Q1

REPORT INFORMATION
  Report Type: Spontaneous
  Country: CN (occurrence: CN)
  Receive Date: 20170309
  Receipt Date: 20170309
  Transmission Date: 20170428
  Serious: Yes (Hospitalization, Disabling)
  Sender: FDA-Public Use
  Company Number: CN-PFIZER INC-2017102535

PATIENT
  Age: 30 Year
  Sex: Male
  Weight: 83.5 kg

DRUGS (2)
  1. SODIUM CHLORIDE. [Concomitant]
     Active Substance: SODIUM CHLORIDE
     Dosage: 100 ML, (0.9%, Q12H)
     Route: 041
  2. CYTARABINE. [Suspect]
     Active Substance: CYTARABINE
     Indication: CHEMOTHERAPY
     Dosage: 0.1 G, 2X/DAY
     Route: 041
     Dates: start: 20161220, end: 20161227

REACTIONS (1)
  - Full blood count decreased [Recovering/Resolving]

NARRATIVE: CASE EVENT DATE: 20161227
